FAERS Safety Report 9084638 (Version 1)
Quarter: 2013Q1

REPORT INFORMATION
  Report Type: Report from Study
  Country: US (occurrence: US)
  Receive Date: 20130131
  Receipt Date: 20130131
  Transmission Date: 20140127
  Serious: Yes (Hospitalization)
  Sender: FDA-Public Use
  Company Number: US-ABBOTT-12P-163-0951924-00

PATIENT
  Age: 37 Year
  Sex: Female

DRUGS (12)
  1. HUMIRA 40 MG/0.8 ML PEN [Suspect]
     Indication: CROHN^S DISEASE
     Dosage: LOADING DOSE
     Dates: start: 20120525, end: 20120606
  2. OMEPRAZOLE [Suspect]
     Indication: GASTROOESOPHAGEAL REFLUX DISEASE
     Dosage: 20 MG DAILY
  3. LO/OVRAL [Concomitant]
     Indication: CONTRACEPTION
  4. CITALOPRAM [Concomitant]
     Indication: DEPRESSION
     Dosage: 20 MG DAILY
  5. CITALOPRAM [Concomitant]
     Indication: ANXIETY
  6. TOPAMAX [Concomitant]
     Indication: MIGRAINE
     Dosage: 100 MG DAILY
  7. TOPAMAX [Concomitant]
     Indication: PROPHYLAXIS
  8. VITAMIN B-12 [Concomitant]
     Indication: CROHN^S DISEASE
  9. OMEGA 3 [Concomitant]
     Indication: CROHN^S DISEASE
     Dosage: DAILY
  10. VICODIN [Concomitant]
     Indication: PAIN
     Dosage: 5/500 MG AS NEEDED
  11. ASACOL [Concomitant]
     Indication: PRODUCT USED FOR UNKNOWN INDICATION
     Dosage: 2 IN AM AND 2 IN PM
  12. BUDESONIDE [Concomitant]
     Indication: PRODUCT USED FOR UNKNOWN INDICATION

REACTIONS (5)
  - Clostridium difficile infection [Recovering/Resolving]
  - Clostridium difficile infection [Not Recovered/Not Resolved]
  - Diarrhoea haemorrhagic [Unknown]
  - Bronchitis [Unknown]
  - Ear disorder [Unknown]
